FAERS Safety Report 19128380 (Version 1)
Quarter: 2021Q2

REPORT INFORMATION
  Report Type: Spontaneous
  Country: US (occurrence: US)
  Receive Date: 20210413
  Receipt Date: 20210413
  Transmission Date: 20210717
  Serious: No
  Sender: FDA-Public Use
  Company Number: US-ALLERGAN-2023390US

PATIENT
  Sex: Female

DRUGS (2)
  1. LATISSE [Suspect]
     Active Substance: BIMATOPROST
     Indication: GROWTH OF EYELASHES
     Dosage: 1 APPLICATION IN PM
  2. LATISSE APPLICATOR [DEVICE] [Suspect]
     Active Substance: DEVICE

REACTIONS (3)
  - Eye pruritus [Recovering/Resolving]
  - Swelling of eyelid [Recovering/Resolving]
  - Erythema of eyelid [Recovering/Resolving]
